FAERS Safety Report 12184543 (Version 1)
Quarter: 2016Q1

REPORT INFORMATION
  Report Type: Spontaneous
  Country: ES (occurrence: ES)
  Receive Date: 20160316
  Receipt Date: 20160316
  Transmission Date: 20160526
  Serious: Yes (Death)
  Sender: FDA-Public Use
  Company Number: ES-BAXALTA-2016BLT001473

PATIENT
  Sex: Female

DRUGS (1)
  1. CEPROTIN [Suspect]
     Active Substance: PROTEIN C
     Indication: PROTEIN C DEFICIENCY
     Dosage: UNK
     Route: 065

REACTIONS (1)
  - Death [Fatal]
